FAERS Safety Report 13648671 (Version 4)
Quarter: 2018Q3

REPORT INFORMATION
  Report Type: Report from Study
  Country: CR (occurrence: CR)
  Receive Date: 20170613
  Receipt Date: 20180904
  Transmission Date: 20181010
  Serious: Yes (Other)
  Sender: FDA-Public Use
  Company Number: PHHY2017CR086841

PATIENT
  Age: 68 Year
  Sex: Female

DRUGS (3)
  1. CONCOR [Concomitant]
     Active Substance: BISOPROLOL FUMARATE
     Indication: PRODUCT USED FOR UNKNOWN INDICATION
     Dosage: 10 ML, UNK
     Route: 065
  2. EXFORGE HCT [Suspect]
     Active Substance: AMLODIPINE BESYLATE\HYDROCHLOROTHIAZIDE\VALSARTAN
     Indication: PRODUCT USED FOR UNKNOWN INDICATION
     Dosage: (AMLODIPINE 5 MG, HYDROCHLOROTHIAZIDE 25 MG, VALSARTAN 160 MG)
     Route: 065
     Dates: end: 20180824
  3. EXFORGE [Suspect]
     Active Substance: AMLODIPINE BESYLATE\VALSARTAN
     Indication: HYPERTENSION
     Dosage: 1 DF (AMLODIPINE 5MG AND VALSARTAN 320 MG), UNK
     Route: 065

REACTIONS (5)
  - Blood pressure increased [Recovering/Resolving]
  - Urinary retention [Unknown]
  - Oedema peripheral [Unknown]
  - Oedema [Unknown]
  - Drug ineffective [Unknown]
